FAERS Safety Report 5896241-7 (Version None)
Quarter: 2008Q3

REPORT INFORMATION
  Report Type: 
  Country: None (occurrence: None)
  Receive Date: 20080924
  Receipt Date: 20080912
  Transmission Date: 20090109
  Serious: Yes (Hospitalization, Other)
  Sender: FDA-Public Use
  Company Number: US-PFIZER INC-2008077702

PATIENT
  Sex: Male
  Weight: 83 kg

DRUGS (2)
  1. DILANTIN [Suspect]
     Indication: CONVULSION
     Dosage: DAILY DOSE:500MG
  2. DILANTIN [Suspect]
     Indication: CONVULSION
     Dosage: DAILY DOSE:500MG

REACTIONS (10)
  - ANTICONVULSANT DRUG LEVEL INCREASED [None]
  - BLOOD CHOLESTEROL INCREASED [None]
  - CARDIAC DISORDER [None]
  - CONVULSION [None]
  - DRUG EFFECT INCREASED [None]
  - GOUT [None]
  - HYPERTENSION [None]
  - ILL-DEFINED DISORDER [None]
  - LOSS OF CONSCIOUSNESS [None]
  - OEDEMA PERIPHERAL [None]
